FAERS Safety Report 19065645 (Version 1)
Quarter: 2021Q1

REPORT INFORMATION
  Report Type: Spontaneous
  Country: FR (occurrence: FR)
  Receive Date: 20210327
  Receipt Date: 20210327
  Transmission Date: 20210420
  Serious: Yes (Hospitalization)
  Sender: FDA-Public Use
  Company Number: FR-ACCORD-220526

PATIENT
  Age: 70 Year
  Sex: Male
  Weight: 93 kg

DRUGS (13)
  1. PANTOPRAZOLE [Concomitant]
     Active Substance: PANTOPRAZOLE
  2. KARDEGIC [Concomitant]
     Active Substance: ASPIRIN DL-LYSINE
     Dosage: 75 MG POWDER FOR ORAL SOLUTION IN SACHET?DOSE
  3. OXALIPLATIN ACCORD [Suspect]
     Active Substance: OXALIPLATIN
     Indication: OESOPHAGEAL ADENOCARCINOMA
     Route: 041
     Dates: start: 20210121, end: 20210121
  4. PARACETAMOL [Concomitant]
     Active Substance: ACETAMINOPHEN
  5. DOCETAXEL ACCORD [Suspect]
     Active Substance: DOCETAXEL
     Indication: OESOPHAGEAL ADENOCARCINOMA
     Dosage: 160 MG/8 ML
     Route: 041
     Dates: start: 20210121, end: 20210121
  6. ENTRESTO [Concomitant]
     Active Substance: SACUBITRIL\VALSARTAN
     Dosage: 24 MG / 26 MG FILM?COATED TABLETS
  7. BISOPROLOL [Concomitant]
     Active Substance: BISOPROLOL
  8. REPAGLINIDE. [Concomitant]
     Active Substance: REPAGLINIDE
  9. SODIUM BICARBONATE. [Concomitant]
     Active Substance: SODIUM BICARBONATE
  10. SODIUM ALGINATE [Concomitant]
     Active Substance: SODIUM ALGINATE
  11. TOUJEO [Concomitant]
     Active Substance: INSULIN GLARGINE
  12. ONDANSETRON [Concomitant]
     Active Substance: ONDANSETRON
  13. AMIODARONE [Concomitant]
     Active Substance: AMIODARONE

REACTIONS (5)
  - Off label use [Unknown]
  - Hypotension [Recovered/Resolved]
  - Oxygen saturation decreased [Recovered/Resolved]
  - Loss of consciousness [Recovered/Resolved]
  - Hypersensitivity [Recovered/Resolved]

NARRATIVE: CASE EVENT DATE: 20210121
